FAERS Safety Report 5124849-5 (Version None)
Quarter: 2006Q4

REPORT INFORMATION
  Report Type: 
  Country: None (occurrence: None)
  Receive Date: 20061011
  Receipt Date: 20061006
  Transmission Date: 20070319
  Serious: Yes (Death)
  Sender: FDA-Public Use
  Company Number: DE-BAYER-200611319BVD

PATIENT
  Sex: Male

DRUGS (3)
  1. AVELOX [Suspect]
     Indication: BRONCHOPNEUMONIA
     Route: 048
  2. SPASMO- MUCOSOLVAN [Concomitant]
  3. FORADIL [Concomitant]

REACTIONS (1)
  - DEATH [None]
